FAERS Safety Report 5482196-6 (Version None)
Quarter: 2007Q4

REPORT INFORMATION
  Report Type: 
  Country: None (occurrence: None)
  Receive Date: 20071011
  Receipt Date: 20071009
  Transmission Date: 20080405
  Serious: Yes (Death)
  Sender: FDA-Public Use
  Company Number: CA-BAYER-200714562GDS

PATIENT
  Age: 75 Year
  Sex: Male
  Weight: 73 kg

DRUGS (3)
  1. NEXAVAR [Suspect]
     Indication: HEPATIC NEOPLASM MALIGNANT
     Route: 048
     Dates: start: 20070719, end: 20071005
  2. LACTULOSE [Concomitant]
     Indication: DRUG USE FOR UNKNOWN INDICATION
     Route: 048
     Dates: end: 20070719
  3. LACTULOSE [Concomitant]
     Route: 048
     Dates: start: 20070719, end: 20071005

REACTIONS (6)
  - ABDOMINAL PAIN UPPER [None]
  - ANOREXIA [None]
  - CONSTIPATION [None]
  - DEATH [None]
  - DIARRHOEA [None]
  - WEIGHT DECREASED [None]
